FAERS Safety Report 5333276-7 (Version None)
Quarter: 2007Q2

REPORT INFORMATION
  Report Type: 
  Country: None (occurrence: None)
  Receive Date: 20070524
  Receipt Date: 20070514
  Transmission Date: 20071010
  Serious: Yes (Hospitalization)
  Sender: FDA-Public Use
  Company Number: HQWYE705127JUN05

PATIENT
  Sex: Female
  Weight: 55.5 kg

DRUGS (6)
  1. RAPAMUNE [Suspect]
     Indication: PROPHYLAXIS AGAINST TRANSPLANT REJECTION
     Route: 048
     Dates: start: 20050515
  2. LOSARTAN POTASSIUM [Concomitant]
     Route: 048
     Dates: start: 20050106
  3. FUROSEMIDE [Concomitant]
     Dosage: UNSPECIFIED
     Route: 048
     Dates: start: 20050516
  4. CYCLOSPORINE [Concomitant]
     Route: 048
     Dates: start: 20050606
  5. PREDNISONE TAB [Concomitant]
     Route: 048
     Dates: start: 20050614
  6. ATENOLOL [Concomitant]
     Route: 048
     Dates: start: 20050106

REACTIONS (1)
  - VULVOVAGINAL PRURITUS [None]
